FAERS Safety Report 9289453 (Version 1)
Quarter: 2013Q2

REPORT INFORMATION
  Report Type: Spontaneous
  Country: ES (occurrence: ES)
  Receive Date: 20130514
  Receipt Date: 20130514
  Transmission Date: 20140414
  Serious: Yes (Death)
  Sender: FDA-Public Use
  Company Number: ES-MYLANLABS-2013S1009951

PATIENT
  Age: 36 Year
  Sex: Female

DRUGS (11)
  1. FLUCONAZOLE [Suspect]
     Indication: ORAL CANDIDIASIS
     Dosage: 100 MG/D
     Route: 065
     Dates: start: 200209
  2. ITRACONAZOLE [Suspect]
     Indication: ORAL CANDIDIASIS
     Dosage: 100 MG/D
     Route: 048
     Dates: start: 20030306
  3. VORICONAZOLE [Suspect]
     Indication: ASPERGILLUS INFECTION
     Dosage: 6 MG/KG Q12H
     Route: 042
  4. VORICONAZOLE [Suspect]
     Indication: ASPERGILLUS INFECTION
     Dosage: 4 MG/KG Q12H
     Route: 042
  5. VORICONAZOLE [Suspect]
     Indication: ASPERGILLUS INFECTION
     Dosage: 200MG Q12H.
     Route: 048
  6. CICLOSPORIN [Concomitant]
     Indication: PROPHYLAXIS AGAINST GRAFT VERSUS HOST DISEASE
     Route: 065
  7. METHOTREXATE [Concomitant]
     Indication: PROPHYLAXIS AGAINST GRAFT VERSUS HOST DISEASE
     Route: 065
  8. GANCICLOVIR [Concomitant]
     Indication: CYTOMEGALOVIRUS TEST POSITIVE
     Route: 065
  9. CASPOFUNGIN [Concomitant]
     Indication: ASPERGILLUS INFECTION
     Dosage: 70 MG/D AS LOADING DOSE
     Route: 065
  10. CASPOFUNGIN [Concomitant]
     Indication: ASPERGILLUS INFECTION
     Dosage: 50 MG/D
     Route: 065
  11. AMPHOTERICIN B, LIPOSOME [Concomitant]
     Indication: ASPERGILLUS INFECTION
     Dosage: 5 MG/KG/D
     Route: 065

REACTIONS (2)
  - Bronchopulmonary aspergillosis [Fatal]
  - Aspergillus infection [Unknown]
